FAERS Safety Report 22367194 (Version 1)
Quarter: 2023Q2

REPORT INFORMATION
  Report Type: Other
  Country: JP (occurrence: None)
  Receive Date: 20230525
  Receipt Date: 20230525
  Transmission Date: 20230721
  Serious: Yes (Death, Other)
  Sender: FDA-Public Use
  Company Number: JP-Merck Healthcare KGaA-9391563

PATIENT
  Age: 50 Year
  Sex: Male

DRUGS (1)
  1. BAVENCIO [Suspect]
     Active Substance: AVELUMAB
     Indication: Transitional cell carcinoma
     Route: 041

REACTIONS (2)
  - Tumour hyperprogression [Fatal]
  - Interleukin level increased [Unknown]
